FAERS Safety Report 24230252 (Version 2)
Quarter: 2024Q3

REPORT INFORMATION
  Report Type: Report from Study
  Country: CA (occurrence: CA)
  Receive Date: 20240820
  Receipt Date: 20240823
  Transmission Date: 20241017
  Serious: No
  Sender: ABBVIE
  Company Number: CA-ABBVIE-5884092

PATIENT
  Age: 31 Year
  Sex: Male

DRUGS (1)
  1. SKYRIZI [Suspect]
     Active Substance: RISANKIZUMAB-RZAA
     Indication: Crohn^s disease
     Route: 058
     Dates: start: 20240410

REACTIONS (4)
  - Dyspnoea [Unknown]
  - Wheezing [Unknown]
  - Drug ineffective [Unknown]
  - Dysphonia [Unknown]

NARRATIVE: CASE EVENT DATE: 20240101
